FAERS Safety Report 9456141 (Version 1)
Quarter: 2013Q3

REPORT INFORMATION
  Report Type: Spontaneous
  Country: US (occurrence: US)
  Receive Date: 20130813
  Receipt Date: 20130813
  Transmission Date: 20140515
  Serious: Yes (Other)
  Sender: FDA-Public Use
  Company Number: US-ACTAVIS-2013-13770

PATIENT
  Age: 71 Year
  Sex: Male
  Weight: 91 kg

DRUGS (3)
  1. PREDNISONE (WATSON LABORATORIES) [Suspect]
     Indication: RHEUMATOID ARTHRITIS
     Dosage: 1 TABLET EVERY DAY
     Route: 048
     Dates: start: 201304
  2. METHOTREXATE [Suspect]
     Indication: RHEUMATOID ARTHRITIS
     Dosage: 1 TABLET TID
     Route: 048
     Dates: start: 201304
  3. ASA [Concomitant]
     Indication: RHEUMATOID ARTHRITIS
     Dosage: 1 TABLET EVERY DAY
     Route: 048

REACTIONS (2)
  - Pemphigoid [Not Recovered/Not Resolved]
  - Herpes zoster [Not Recovered/Not Resolved]
